FAERS Safety Report 8935532 (Version 1)
Quarter: 2012Q4

REPORT INFORMATION
  Report Type: 
  Country: BR (occurrence: BR)
  Receive Date: 20121130
  Receipt Date: 20121130
  Transmission Date: 20130627
  Serious: Yes (Hospitalization)
  Sender: FDA-Public Use
  Company Number: BR-ASTRAZENECA-2012SE88590

PATIENT
  Age: 54 Year
  Sex: Male
  Weight: 87 kg

DRUGS (5)
  1. CRESTOR [Suspect]
     Indication: BLOOD TRIGLYCERIDES INCREASED
     Route: 048
     Dates: start: 2007, end: 2012
  2. CRESTOR [Suspect]
     Indication: BLOOD TRIGLYCERIDES INCREASED
     Route: 048
     Dates: start: 2012
  3. ATENOLOL [Suspect]
     Indication: HYPERTENSION
     Route: 048
     Dates: start: 1999
  4. ASPIRINE [Concomitant]
     Route: 048
     Dates: start: 1999
  5. ZETIA [Concomitant]
     Indication: BLOOD TRIGLYCERIDES INCREASED
     Dosage: OD
     Route: 048
     Dates: start: 2007

REACTIONS (4)
  - Myocardial infarction [Recovered/Resolved]
  - Device occlusion [Recovered/Resolved]
  - Blood triglycerides increased [Unknown]
  - Drug ineffective [Unknown]
